FAERS Safety Report 6388130-9 (Version None)
Quarter: 2009Q4

REPORT INFORMATION
  Report Type: 
  Country: None (occurrence: None)
  Receive Date: 20091005
  Receipt Date: 20090924
  Transmission Date: 20100525
  Serious: Yes (Other)
  Sender: FDA-Public Use
  Company Number: RU-BAYER-200933440GPV

PATIENT
  Age: 60 Year
  Sex: Female

DRUGS (1)
  1. ANGELIQ [Suspect]
     Indication: MENOPAUSE
     Route: 048

REACTIONS (3)
  - FLUSHING [None]
  - PRODUCT QUALITY ISSUE [None]
  - SYNCOPE [None]
